FAERS Safety Report 8715983 (Version 2)
Quarter: 2013Q1

REPORT INFORMATION
  Report Type: Spontaneous
  Country: US (occurrence: None)
  Receive Date: 20120726
  Receipt Date: 20121129
  Transmission Date: 20140127
  Serious: Yes (Other)
  Sender: FDA-Public Use
  Company Number: DSA_58554_2012

PATIENT
  Age: 25 Year
  Sex: Female

DRUGS (7)
  1. BUPROPION [Suspect]
     Indication: DEPRESSION
     Dosage: 150 MG,  DAILY ORAL
     Route: 048
     Dates: start: 20120531, end: 20120612
  2. PIPAMPERONE [Suspect]
     Indication: SLEEP DISORDER
     Dosage: 40 MG, DAILY ORAL
     Route: 048
     Dates: start: 20120427, end: 20120612
  3. MIRTAZAPINE [Suspect]
     Indication: SLEEP DISORDER
     Dosage: 45 MG, DAILY ORAL
     Route: 048
     Dates: start: 20120414, end: 20120612
  4. IBUPROFEN [Concomitant]
  5. PANTOPRAZOL [Concomitant]
  6. ACC LONG [Concomitant]
  7. NEO-ANGIN HALSTALETTEN [Concomitant]

REACTIONS (3)
  - Alanine aminotransferase increased [None]
  - Aspartate aminotransferase increased [None]
  - Blood creatine phosphokinase increased [None]
